FAERS Safety Report 25566860 (Version 1)
Quarter: 2025Q3

REPORT INFORMATION
  Report Type: Spontaneous
  Country: US (occurrence: US)
  Receive Date: 20250716
  Receipt Date: 20250716
  Transmission Date: 20251021
  Serious: Yes (Death)
  Sender: PFIZER
  Company Number: US-PFIZER INC-202500075962

PATIENT
  Age: 46 Year
  Sex: Male
  Weight: 119.2 kg

DRUGS (3)
  1. INLYTA [Suspect]
     Active Substance: AXITINIB
     Indication: Metastatic renal cell carcinoma
     Dosage: TAKE ONE 10 MG AND TWO 4MG PILLS DAILY
  2. INLYTA [Suspect]
     Active Substance: AXITINIB
     Dosage: TAKE WITH A FULL GLASS OF WATER
     Route: 048
  3. INLYTA [Suspect]
     Active Substance: AXITINIB

REACTIONS (3)
  - Death [Fatal]
  - Off label use [Unknown]
  - Off label use [Unknown]

NARRATIVE: CASE EVENT DATE: 20250620
